FAERS Safety Report 16591550 (Version 3)
Quarter: 2019Q3

REPORT INFORMATION
  Report Type: Report from Study
  Country: CO (occurrence: CO)
  Receive Date: 20190718
  Receipt Date: 20190807
  Transmission Date: 20191004
  Serious: Yes (Life-Threatening, Hospitalization, Other)
  Sender: FDA-Public Use
  Company Number: CO-BRISTOL-MYERS SQUIBB COMPANY-BMS-2019-042521

PATIENT
  Age: 64 Year
  Sex: Male

DRUGS (2)
  1. NIVOLUMAB [Suspect]
     Active Substance: NIVOLUMAB
     Indication: MALIGNANT MELANOMA
     Dosage: 250 MILLIGRAM, Q2WK
     Route: 042
     Dates: start: 20180727
  2. NIVOLUMAB [Suspect]
     Active Substance: NIVOLUMAB
     Indication: PRODUCT USED FOR UNKNOWN INDICATION
     Dosage: 186 MILLIGRAM, Q2WK
     Route: 042
     Dates: start: 20180727, end: 20190625

REACTIONS (9)
  - Chest pain [Recovered/Resolved]
  - Seizure [Recovered/Resolved]
  - Encephalitis [Recovering/Resolving]
  - Drug ineffective [Unknown]
  - Pyrexia [Recovered/Resolved]
  - Asthenia [Unknown]
  - Neoplasm [Recovered/Resolved]
  - Metastasis [Recovering/Resolving]
  - Cough [Recovered/Resolved]

NARRATIVE: CASE EVENT DATE: 20190416
